FAERS Safety Report 18842576 (Version 1)
Quarter: 2021Q1

REPORT INFORMATION
  Report Type: Spontaneous
  Country: US (occurrence: US)
  Receive Date: 20210204
  Receipt Date: 20210204
  Transmission Date: 20210419
  Serious: No
  Sender: FDA-Public Use
  Company Number: US-SA-2021SA033717

PATIENT
  Sex: Male

DRUGS (4)
  1. CELLSEPT [Concomitant]
     Active Substance: MYCOPHENOLATE MOFETIL
  2. NEORAL [Concomitant]
     Active Substance: CYCLOSPORINE
  3. DUPIXENT [Suspect]
     Active Substance: DUPILUMAB
     Indication: ASTHMA
     Dosage: 300 MG, QOW
     Route: 058
     Dates: start: 202009
  4. PRALUENT [Concomitant]
     Active Substance: ALIROCUMAB
     Dosage: 75MG

REACTIONS (2)
  - Abdominal pain upper [Unknown]
  - Muscle spasms [Unknown]
